FAERS Safety Report 16745562 (Version 2)
Quarter: 2019Q3

REPORT INFORMATION
  Report Type: Spontaneous
  Country: US (occurrence: US)
  Receive Date: 20190827
  Receipt Date: 20190923
  Transmission Date: 20191005
  Serious: No
  Sender: FDA-Public Use
  Company Number: US-JNJFOC-20190828741

PATIENT
  Sex: Male
  Weight: 88.98 kg

DRUGS (2)
  1. CMP [Concomitant]
     Indication: CROHN^S DISEASE
     Route: 065
  2. REMICADE [Suspect]
     Active Substance: INFLIXIMAB
     Indication: CROHN^S DISEASE
     Dosage: DOUBLE DOSE
     Route: 042

REACTIONS (2)
  - Drug ineffective [Unknown]
  - Extra dose administered [Unknown]
